FAERS Safety Report 8185380-6 (Version None)
Quarter: 2012Q1

REPORT INFORMATION
  Report Type: 
  Country: None (occurrence: None)
  Receive Date: 20120305
  Receipt Date: 20120228
  Transmission Date: 20120608
  Serious: Yes (Other)
  Sender: FDA-Public Use
  Company Number: PHHY2012CA017945

PATIENT
  Sex: Female
  Weight: 133 kg

DRUGS (11)
  1. EVISTA [Concomitant]
     Dosage: 670 MG, UNK
  2. DIDROCAL [Concomitant]
     Dosage: 400 MG, UNK
     Dates: end: 20030130
  3. FOSAMAX [Concomitant]
  4. VITAMIN D [Concomitant]
     Dosage: 400 IU, UNK
  5. GLUCOCORTICOIDS [Concomitant]
  6. ACTONEL [Concomitant]
     Dosage: 35 MG, UNK
     Dates: start: 20030130, end: 20080201
  7. CALCIUM [Concomitant]
     Dosage: 500 MG, UNK
     Dates: end: 20110101
  8. MIACALCIN [Concomitant]
     Dosage: 200 UL, UNK
  9. ZOLEDRONOC ACID [Suspect]
     Indication: OSTEOPOROSIS
     Dosage: 5 MG/100 ML YEARLY
     Route: 042
     Dates: start: 20090304
  10. PREMARIN [Concomitant]
     Dosage: 0.625 UKN,
     Dates: start: 19980101, end: 20050701
  11. FORTEO [Concomitant]
     Dosage: 20 MG, UNK

REACTIONS (2)
  - FACIAL BONES FRACTURE [None]
  - HUMERUS FRACTURE [None]
